FAERS Safety Report 6484021-3 (Version None)
Quarter: 2009Q4

REPORT INFORMATION
  Report Type: 
  Country: None (occurrence: None)
  Receive Date: 20091123
  Receipt Date: 20090921
  Transmission Date: 20100525
  Serious: No
  Sender: FDA-Public Use
  Company Number: 8052441

PATIENT
  Age: 55 Year
  Sex: Male
  Weight: 111.3 kg

DRUGS (4)
  1. CIMZIA [Suspect]
     Indication: CROHN'S DISEASE
     Dosage: 400 MG SC
     Route: 058
     Dates: start: 20090918
  2. SOMATOSTATIN [Concomitant]
  3. ENTOCORT EC [Concomitant]
  4. ZOLOFT [Concomitant]

REACTIONS (3)
  - FEELING OF BODY TEMPERATURE CHANGE [None]
  - INSOMNIA [None]
  - NAUSEA [None]
